FAERS Safety Report 7046815-5 (Version None)
Quarter: 2010Q4

REPORT INFORMATION
  Report Type: 
  Country: None (occurrence: None)
  Receive Date: 20101015
  Receipt Date: 20101011
  Transmission Date: 20110411
  Serious: Yes (Other)
  Sender: FDA-Public Use
  Company Number: US-BRACCO-005280

PATIENT
  Age: 47 Year
  Sex: Female

DRUGS (2)
  1. ISOVUE-128 [Suspect]
     Indication: COMPUTERISED TOMOGRAM
     Route: 037
     Dates: start: 20100929, end: 20100929
  2. ISOVUE-128 [Suspect]
     Indication: SPINAL MYELOGRAM
     Route: 037
     Dates: start: 20100929, end: 20100929

REACTIONS (3)
  - DYSPHAGIA [None]
  - HYPOAESTHESIA FACIAL [None]
  - NAUSEA [None]
